FAERS Safety Report 7372806-0 (Version None)
Quarter: 2011Q1

REPORT INFORMATION
  Report Type: 
  Country: None (occurrence: None)
  Receive Date: 20110324
  Receipt Date: 20110228
  Transmission Date: 20110831
  Serious: No
  Sender: FDA-Public Use
  Company Number: US-BAUSCH-2011BL000375

PATIENT
  Age: 89 Year
  Sex: Female

DRUGS (4)
  1. BESIVANCE [Suspect]
     Indication: OFF LABEL USE
     Dates: start: 20100911
  2. BROMIDE [Concomitant]
     Indication: PREOPERATIVE CARE
     Dates: start: 20100911
  3. PREDNISOLONE ACETATE [Concomitant]
     Indication: POSTOPERATIVE CARE
     Route: 047
     Dates: start: 20100914
  4. BESIVANCE [Suspect]
     Indication: PROPHYLAXIS
     Dates: start: 20100911

REACTIONS (2)
  - DEVICE MATERIAL OPACIFICATION [None]
  - IRITIS [None]
